FAERS Safety Report 4753740-9 (Version None)
Quarter: 2005Q3

REPORT INFORMATION
  Report Type: 
  Country: None (occurrence: None)
  Receive Date: 20050826
  Receipt Date: 20030214
  Transmission Date: 20060218
  Serious: Yes (Hospitalization)
  Sender: FDA-Public Use
  Company Number: PHBS2003BE01889

PATIENT
  Age: 37 Year
  Sex: Male

DRUGS (2)
  1. AREDIA [Suspect]
     Indication: COMPLEX REGIONAL PAIN SYNDROME
     Dosage: 5 X 30 MG OVER 15 DAYS
     Dates: start: 20030128
  2. TRAMADOL HCL [Concomitant]
     Indication: ARTHRALGIA
     Dosage: MAXIMAL 25 MG/D
     Route: 065

REACTIONS (18)
  - ATRIOVENTRICULAR BLOCK [None]
  - BLOOD CREATINE PHOSPHOKINASE INCREASED [None]
  - BUNDLE BRANCH BLOCK LEFT [None]
  - CARDIAC FAILURE CONGESTIVE [None]
  - CEREBROVASCULAR ACCIDENT [None]
  - CONJUNCTIVAL HYPERAEMIA [None]
  - EJECTION FRACTION DECREASED [None]
  - EPISCLERITIS [None]
  - HEMIPLEGIA TRANSIENT [None]
  - HYPERHIDROSIS [None]
  - INFLUENZA LIKE ILLNESS [None]
  - LEFT VENTRICULAR FAILURE [None]
  - MYALGIA [None]
  - PALPITATIONS [None]
  - PHARMACEUTICAL PRODUCT COMPLAINT [None]
  - PHOTOPHOBIA [None]
  - PYREXIA [None]
  - VIRAL MYOCARDITIS [None]
